FAERS Safety Report 6428062-0 (Version None)
Quarter: 2009Q4

REPORT INFORMATION
  Report Type: 
  Country: None (occurrence: None)
  Receive Date: 20091104
  Receipt Date: 20091104
  Transmission Date: 20100525
  Serious: Yes (Hospitalization)
  Sender: FDA-Public Use
  Company Number: None

PATIENT
  Age: 24 Year
  Sex: Male
  Weight: 124.7 kg

DRUGS (1)
  1. VANCOMYCIN [Suspect]
     Indication: CELLULITIS
     Dosage: 1.75 GM TID IV
     Route: 042
     Dates: start: 20090804, end: 20090811

REACTIONS (3)
  - CHILLS [None]
  - PYREXIA [None]
  - RASH ERYTHEMATOUS [None]
